FAERS Safety Report 4834501-9 (Version None)
Quarter: 2005Q4

REPORT INFORMATION
  Report Type: 
  Country: None (occurrence: None)
  Receive Date: 20051122
  Receipt Date: 20050107
  Transmission Date: 20060501
  Serious: No
  Sender: FDA-Public Use
  Company Number: US-BRISTOL-MYERS SQUIBB COMPANY-12818878

PATIENT
  Age: 93 Year
  Sex: Female
  Weight: 56 kg

DRUGS (5)
  1. PRAVACHOL [Suspect]
     Indication: BLOOD CHOLESTEROL INCREASED
     Route: 048
  2. ASPIRIN [Concomitant]
  3. LOTENSIN [Concomitant]
  4. PLENDIL [Concomitant]
  5. ATENOLOL [Concomitant]

REACTIONS (2)
  - HYPERTROPHY BREAST [None]
  - URTICARIA [None]
